FAERS Safety Report 6355596-X (Version None)
Quarter: 2009Q3

REPORT INFORMATION
  Report Type: 
  Country: None (occurrence: None)
  Receive Date: 20090910
  Receipt Date: 20090825
  Transmission Date: 20100115
  Serious: Yes (Hospitalization)
  Sender: FDA-Public Use
  Company Number: 2008AL007563

PATIENT
  Age: 43 Year
  Sex: Male
  Weight: 90.7194 kg

DRUGS (18)
  1. DIGOXIN [Suspect]
     Dosage: 0.125MG, DAILY, PO
     Route: 048
  2. CLONAZEPAM [Concomitant]
  3. ASPIRIN [Concomitant]
  4. PREVACID [Concomitant]
  5. PERCOCET [Concomitant]
  6. ALBUTEROL [Concomitant]
  7. COREG [Concomitant]
  8. EFFEXOR [Concomitant]
  9. REQUIP [Concomitant]
  10. VALIUM [Concomitant]
  11. AVALIDE [Concomitant]
  12. WELLBUTRIN [Concomitant]
  13. AVAPRO [Concomitant]
  14. KLONOPIN [Concomitant]
  15. FLEXERIL [Concomitant]
  16. TORADOL [Concomitant]
  17. DILAUDID [Concomitant]
  18. COMPAZINE [Concomitant]

REACTIONS (15)
  - ABDOMINAL DISCOMFORT [None]
  - BACK PAIN [None]
  - CHEST PAIN [None]
  - FATIGUE [None]
  - GAIT DISTURBANCE [None]
  - HYPOAESTHESIA [None]
  - ILL-DEFINED DISORDER [None]
  - INSOMNIA [None]
  - MULTIPLE INJURIES [None]
  - NAUSEA [None]
  - PARAESTHESIA [None]
  - SLEEP DISORDER [None]
  - SOMNOLENCE [None]
  - TREMOR [None]
  - WEIGHT INCREASED [None]
